FAERS Safety Report 9826667 (Version 1)
Quarter: 2013Q4

REPORT INFORMATION
  Report Type: Spontaneous
  Country: US (occurrence: None)
  Receive Date: 20131112
  Receipt Date: 20131112
  Transmission Date: 20140711
  Serious: No
  Sender: FDA-Public Use
  Company Number: US-012480

PATIENT
  Age: 70 Year
  Sex: Female
  Weight: 92.08 kg

DRUGS (4)
  1. PICO-SALAX [Suspect]
     Indication: BOWEL PREPARATION
     Dates: start: 20130718
  2. LIPITOR [Concomitant]
  3. HYDROCHLOROTHIAZIDE [Concomitant]
  4. CELEXA [Concomitant]

REACTIONS (7)
  - Cold sweat [None]
  - Dizziness [None]
  - Abdominal pain [None]
  - Proctalgia [None]
  - Faecal incontinence [None]
  - Nausea [None]
  - Retching [None]
